FAERS Safety Report 10150489 (Version 2)
Quarter: 2014Q2

REPORT INFORMATION
  Report Type: Spontaneous
  Country: FR (occurrence: FR)
  Receive Date: 20140502
  Receipt Date: 20140609
  Transmission Date: 20141212
  Serious: Yes (Hospitalization)
  Sender: FDA-Public Use
  Company Number: FR-BAYER-2014-063039

PATIENT
  Age: 42 Year
  Sex: Female
  Weight: 48 kg

DRUGS (6)
  1. STIVARGA [Suspect]
     Indication: GASTRIC CANCER
     Dosage: 3 DF, QD
     Route: 048
     Dates: start: 20140425
  2. STIVARGA [Suspect]
     Indication: GASTRIC CANCER
     Dosage: UNK
     Dates: start: 20140515
  3. FENTANYL [Concomitant]
     Indication: ANALGESIC THERAPY
  4. ACTISKENAN [Concomitant]
     Indication: ANALGESIC THERAPY
  5. ADEPAL [Concomitant]
     Indication: CONTRACEPTION
     Dosage: UNK
     Dates: start: 201404, end: 201404
  6. ADEPAL [Concomitant]
     Indication: CONTRACEPTION

REACTIONS (5)
  - Nausea [None]
  - Fatigue [None]
  - Vomiting [None]
  - Faeces pale [Recovering/Resolving]
  - Abdominal pain [Recovering/Resolving]
